FAERS Safety Report 23678766 (Version 6)
Quarter: 2024Q4

REPORT INFORMATION
  Report Type: Spontaneous
  Country: PT (occurrence: PT)
  Receive Date: 20240327
  Receipt Date: 20241218
  Transmission Date: 20250114
  Serious: Yes (Life-Threatening, Hospitalization, Other)
  Sender: MERCK
  Company Number: None

PATIENT
  Age: 60 Year
  Sex: Female
  Weight: 62 kg

DRUGS (4)
  1. KEYTRUDA [Suspect]
     Active Substance: PEMBROLIZUMAB
     Indication: Triple negative breast cancer
     Dosage: 200 MG IV INFUSION EVERY 21 DAYS UP TO 9 ADMINISTRATIONS
     Route: 042
     Dates: start: 20240206, end: 20240206
  2. DOXORUBICIN HYDROCHLORIDE [Concomitant]
     Active Substance: DOXORUBICIN HYDROCHLORIDE
     Dosage: 1ST CYCLE - 19/DEC/2023; 2ND CYCLE - 16/JAN/2024; 3RD CYCLE - 06/FEB/2024
     Route: 042
     Dates: start: 20231219
  3. CYCLOPHOSPHAMIDE [Concomitant]
     Active Substance: CYCLOPHOSPHAMIDE
     Dosage: 1ST CYCLE - 19/DEC/2023; 2ND CYCLE - 16/JAN/2024; 3RD CYCLE - 06/FEB/2024
     Route: 042
  4. GLUCOSAMINE [Concomitant]
     Active Substance: GLUCOSAMINE

REACTIONS (6)
  - Diabetic ketoacidosis [Recovering/Resolving]
  - Acute myocardial infarction [Unknown]
  - Hypothyroidism [Unknown]
  - Type 1 diabetes mellitus [Unknown]
  - Adrenal insufficiency [Unknown]
  - Immune-mediated hypophysitis [Unknown]

NARRATIVE: CASE EVENT DATE: 20240101
